FAERS Safety Report 6379945-1 (Version None)
Quarter: 2009Q3

REPORT INFORMATION
  Report Type: 
  Country: None (occurrence: None)
  Receive Date: 20090928
  Receipt Date: 20090922
  Transmission Date: 20100115
  Serious: Yes (Other)
  Sender: FDA-Public Use
  Company Number: US-JNJFOC-20090906973

PATIENT
  Age: 22 Month
  Sex: Female
  Weight: 10.43 kg

DRUGS (2)
  1. TYLENOL (CAPLET) [Suspect]
     Route: 048
  2. TYLENOL (CAPLET) [Suspect]
     Indication: IRRITABILITY
     Route: 048

REACTIONS (1)
  - HALLUCINATION, VISUAL [None]
